FAERS Safety Report 7828914-0 (Version None)
Quarter: 2011Q4

REPORT INFORMATION
  Report Type: 
  Country: None (occurrence: None)
  Receive Date: 20111020
  Receipt Date: 20111013
  Transmission Date: 20120403
  Serious: Yes (Other)
  Sender: FDA-Public Use
  Company Number: US-PURDUE-USA-2011-0076198

PATIENT
  Sex: Male

DRUGS (1)
  1. BUTRANS [Suspect]
     Indication: PRODUCT USED FOR UNKNOWN INDICATION
     Dosage: 20 MCG, Q1H
     Route: 062

REACTIONS (7)
  - DYSPNOEA [None]
  - PAIN [None]
  - CHEST DISCOMFORT [None]
  - CHRONIC OBSTRUCTIVE PULMONARY DISEASE [None]
  - LUNG NEOPLASM MALIGNANT [None]
  - INCREASED UPPER AIRWAY SECRETION [None]
  - HEART RATE INCREASED [None]
